FAERS Safety Report 18416522 (Version 1)
Quarter: 2020Q4

REPORT INFORMATION
  Report Type: Spontaneous
  Country: CN (occurrence: CN)
  Receive Date: 20201022
  Receipt Date: 20201022
  Transmission Date: 20210114
  Serious: Yes (Other)
  Sender: FDA-Public Use
  Company Number: CN-PFIZER INC-2020403734

PATIENT
  Age: 3 Year
  Sex: Male
  Weight: 15 kg

DRUGS (5)
  1. GLUCOSE [Concomitant]
     Active Substance: DEXTROSE
     Indication: VEHICLE SOLUTION USE
     Dosage: 50 ML, 1X/DAY
     Route: 041
     Dates: start: 20201001, end: 20201001
  2. SOLU-MEDROL [Suspect]
     Active Substance: METHYLPREDNISOLONE SODIUM SUCCINATE
     Indication: BRONCHITIS
     Dosage: 30 MG (WITH USAGE: 0.75 BOTTLES OF 30 MG EACH  TEMPORARILY), 1X/DAY
     Route: 041
     Dates: start: 20201001, end: 20201001
  3. PULMICORT TURBUHALER [Concomitant]
     Active Substance: BUDESONIDE
     Indication: BRONCHITIS
     Dosage: 2 ML, 1X/DAY
     Route: 055
     Dates: start: 20201001, end: 20201001
  4. ATROVENT [Concomitant]
     Active Substance: IPRATROPIUM BROMIDE
     Indication: BRONCHITIS
     Dosage: 1 ML, 1X/DAY
     Route: 055
     Dates: start: 20201001, end: 20201001
  5. TERBUTALINE SULPHATE [Concomitant]
     Active Substance: TERBUTALINE SULFATE
     Indication: BRONCHITIS
     Dosage: 1 ML, 1X/DAY
     Dates: start: 20201001, end: 20201001

REACTIONS (5)
  - Urticaria [Recovering/Resolving]
  - Product use in unapproved indication [Unknown]
  - Rash erythematous [Recovering/Resolving]
  - Airway complication of anaesthesia [Recovering/Resolving]
  - Off label use [Unknown]

NARRATIVE: CASE EVENT DATE: 20201001
